FAERS Safety Report 9282098 (Version 1)
Quarter: 2013Q2

REPORT INFORMATION
  Report Type: Spontaneous
  Country: US (occurrence: None)
  Receive Date: 20130508
  Receipt Date: 20130508
  Transmission Date: 20140414
  Serious: Yes (Life-Threatening)
  Sender: FDA-Public Use
  Company Number: None

PATIENT
  Age: 51 Year
  Sex: Male
  Weight: 68 kg

DRUGS (17)
  1. DROTRECOGIN ALFA [Suspect]
     Indication: SEPSIS
     Dosage: 24MCG/KG/HR CONTINOUS IV
     Route: 042
     Dates: start: 20110403, end: 20110404
  2. PENDEX [Concomitant]
  3. DOCUSATE [Concomitant]
  4. SENNA [Concomitant]
  5. FENTANYL [Concomitant]
  6. PHENYEPHRINE [Concomitant]
  7. RIFAXIMIN [Concomitant]
  8. METROXIOAZOLE [Concomitant]
  9. NOREPINEPHRINE [Concomitant]
  10. VASOPRESSIN [Concomitant]
  11. CASPOFUNGIN [Concomitant]
  12. CEFAQAIN [Concomitant]
  13. SODIUM BICARBONATE [Concomitant]
  14. HYDROEASTO [Concomitant]
  15. PANTOPRAZOLE [Concomitant]
  16. COLISTIN [Concomitant]
  17. VANCOMYCIN [Concomitant]

REACTIONS (4)
  - Cardiogenic shock [None]
  - Acidosis [None]
  - Conjunctival haemorrhage [None]
  - Ecchymosis [None]
